FAERS Safety Report 10201543 (Version 1)
Quarter: 2014Q2

REPORT INFORMATION
  Report Type: Report from Study
  Country: US (occurrence: US)
  Receive Date: 20140528
  Receipt Date: 20140528
  Transmission Date: 20141212
  Serious: Yes (Hospitalization)
  Sender: FDA-Public Use
  Company Number: US-SA-2014SA064071

PATIENT
  Age: 79 Year
  Sex: Male

DRUGS (2)
  1. LANTUS [Suspect]
     Indication: DIABETES MELLITUS
     Dosage: DOSE:22 UNITS IN THE MORNING AND 20 UNITS IN THE EVENING?DAILY DOSE:42 UNITS
     Route: 058
     Dates: start: 2009
  2. NOVOLOG [Suspect]
     Indication: PRODUCT USED FOR UNKNOWN INDICATION
     Route: 065

REACTIONS (6)
  - Pain [Not Recovered/Not Resolved]
  - Drug administration error [Unknown]
  - Fall [Unknown]
  - Swelling [Not Recovered/Not Resolved]
  - Arthropathy [Not Recovered/Not Resolved]
  - Blood glucose abnormal [Recovering/Resolving]
